FAERS Safety Report 8544449-4 (Version None)
Quarter: 2012Q3

REPORT INFORMATION
  Report Type: 
  Country: None (occurrence: None)
  Receive Date: 20120717
  Receipt Date: 20120702
  Transmission Date: 20120928
  Serious: Yes (Hospitalization, Other)
  Sender: FDA-Public Use
  Company Number: 2012P1046262

PATIENT
  Age: 80 Year
  Sex: Male
  Weight: 83.9154 kg

DRUGS (10)
  1. WARFARIN SODIUM [Suspect]
     Indication: TRANSIENT ISCHAEMIC ATTACK
     Dosage: 7.5 MG, QD, PO
     Route: 048
     Dates: start: 20120201, end: 20120320
  2. WARFARIN SODIUM [Suspect]
     Indication: HYPERTENSION
     Dosage: 7.5 MG, QD, PO
     Route: 048
     Dates: start: 20120201, end: 20120320
  3. WARFARIN 2.5 MG (ZYGENERICS) [Suspect]
     Indication: HYPERTENSION
     Dosage: 2.5 MG, BIW, QD, PO
     Route: 048
     Dates: end: 20120301
  4. WARFARIN 2.5 MG (ZYGENERICS) [Suspect]
     Indication: TRANSIENT ISCHAEMIC ATTACK
     Dosage: 2.5 MG, BIW, QD, PO
     Route: 048
     Dates: end: 20120301
  5. WARFARIN 2.5 MG (ZYGENERICS) [Suspect]
     Indication: HYPERTENSION
     Dosage: 2.5 MG, BIW, QD, PO
     Route: 048
     Dates: start: 20120306, end: 20120320
  6. WARFARIN 2.5 MG (ZYGENERICS) [Suspect]
     Indication: TRANSIENT ISCHAEMIC ATTACK
     Dosage: 2.5 MG, BIW, QD, PO
     Route: 048
     Dates: start: 20120306, end: 20120320
  7. LOSARTAN POTASSIUM [Concomitant]
  8. FISH OIL [Concomitant]
  9. LIPITOR [Concomitant]
  10. VITAMIN TAB [Concomitant]

REACTIONS (5)
  - INTERNATIONAL NORMALISED RATIO FLUCTUATION [None]
  - THROMBOTIC STROKE [None]
  - PRODUCT SUBSTITUTION ISSUE [None]
  - ATRIAL FIBRILLATION [None]
  - PRODUCT QUALITY ISSUE [None]
